FAERS Safety Report 10404359 (Version 2)
Quarter: 2014Q3

REPORT INFORMATION
  Report Type: Report from Study
  Country: US (occurrence: US)
  Receive Date: 20140823
  Receipt Date: 20140823
  Transmission Date: 20150326
  Serious: Yes (Other)
  Sender: FDA-Public Use
  Company Number: PHEH2014US006419

PATIENT
  Sex: Female

DRUGS (2)
  1. TEGRETOL [Suspect]
     Active Substance: CARBAMAZEPINE
     Dosage: 200 MG
  2. TEGRETOL [Suspect]
     Active Substance: CARBAMAZEPINE
     Dosage: 200 MG

REACTIONS (6)
  - Balance disorder [Unknown]
  - Middle ear effusion [Unknown]
  - Fear [Unknown]
  - Drug dispensing error [Unknown]
  - Vertigo [Unknown]
  - Malaise [Unknown]
